FAERS Safety Report 5794971-9 (Version None)
Quarter: 2008Q2

REPORT INFORMATION
  Report Type: 
  Country: None (occurrence: None)
  Receive Date: 20080630
  Receipt Date: 20080616
  Transmission Date: 20081010
  Serious: Yes (Death, Hospitalization)
  Sender: FDA-Public Use
  Company Number: CA-ROCHE-568174

PATIENT
  Sex: Female
  Weight: 51 kg

DRUGS (13)
  1. CAPECITABINE [Suspect]
     Dosage: DOSAGE FORM REPORTED: 3500 MG ONCE A DAY 7/14
     Route: 048
     Dates: start: 20080421, end: 20080606
  2. BEVACIZUMAB [Suspect]
     Dosage: DOSAGE FORM REPORTED: MG/KG.
     Route: 042
     Dates: start: 20080421, end: 20080606
  3. OXALIPLATIN [Suspect]
     Dosage: AS PER PROTOCOL 'OXALIPLATIN 100 MG/M2 DAY 1 EVERY 2 WEEKS'.
     Route: 042
     Dates: start: 20080421, end: 20080606
  4. CODEINE [Concomitant]
     Dates: start: 20080201, end: 20080604
  5. TYLENOL [Concomitant]
     Dates: start: 20080201
  6. POTASSIUM CHLORIDE [Concomitant]
     Dates: start: 20080424, end: 20080529
  7. FLAGYL [Concomitant]
     Dosage: DRUG NAME: FLAGYL OINTMENT TDD: TOPICAL
     Route: 061
     Dates: start: 20080425, end: 20080529
  8. COLACE [Concomitant]
     Dates: start: 20080425, end: 20080529
  9. FERROUS SULFATE TAB [Concomitant]
     Dates: start: 20080427, end: 20080529
  10. LOPRESSOR [Concomitant]
     Dates: start: 20080430, end: 20080605
  11. LASIX [Concomitant]
     Dates: start: 20080430, end: 20080529
  12. LYRICA [Concomitant]
     Dates: start: 20080521, end: 20080605
  13. ACETAMINOPHEN [Concomitant]
     Dates: start: 20060201, end: 20080529

REACTIONS (3)
  - DIARRHOEA [None]
  - GENERAL PHYSICAL HEALTH DETERIORATION [None]
  - NAUSEA [None]
